FAERS Safety Report 10034903 (Version 2)
Quarter: 2014Q1

REPORT INFORMATION
  Report Type: Report from Study
  Country: JP (occurrence: JP)
  Receive Date: 20140325
  Receipt Date: 20140325
  Transmission Date: 20141002
  Serious: Yes (Death, Life-Threatening, Hospitalization, Disabling)
  Sender: FDA-Public Use
  Company Number: JP-SA-THYM-1004056

PATIENT
  Age: 72 Year
  Sex: Male
  Weight: 59 kg

DRUGS (19)
  1. THYMOGLOBULINE [Suspect]
     Indication: APLASTIC ANAEMIA
     Route: 065
     Dates: start: 20130121, end: 20130125
  2. NEORAL [Suspect]
     Indication: APLASTIC ANAEMIA
     Dosage: 50 MG, UNK
     Route: 065
     Dates: start: 20120601, end: 20130227
  3. DENOSINE [Suspect]
     Indication: PRODUCT USED FOR UNKNOWN INDICATION
     Dosage: UNK
     Route: 065
  4. VFEND [Suspect]
     Indication: PULMONARY MYCOSIS
     Dosage: UNK
     Route: 065
  5. VFEND [Suspect]
     Indication: CANDIDA INFECTION
     Dosage: UNK
     Route: 065
  6. CANCIDAS [Suspect]
     Indication: PULMONARY MYCOSIS
     Dosage: UNK
     Route: 065
  7. CANCIDAS [Suspect]
     Indication: CANDIDA INFECTION
     Dosage: UNK
     Route: 065
  8. MEROPEN [Suspect]
     Indication: FEBRILE NEUTROPENIA
     Dosage: UNK
     Route: 065
  9. GRANULOCYTE COLONY-STIMULATING FACTOR NOS [Concomitant]
     Dosage: UNK
  10. CALONAL [Concomitant]
     Indication: PROPHYLAXIS
     Dosage: 600 MG, UNK
     Route: 065
     Dates: start: 20130121, end: 20130125
  11. RESTAMIN [Concomitant]
     Indication: PROPHYLAXIS
     Dosage: 10 MG, UNK
     Dates: start: 20130121, end: 20130125
  12. DIFLUCAN [Concomitant]
     Indication: ANTIFUNGAL PROPHYLAXIS
     Dosage: 100 MG, UNK
     Dates: start: 20130121, end: 20130211
  13. CRAVIT [Concomitant]
     Indication: ANTIBIOTIC PROPHYLAXIS
     Dosage: 250 MG, UNK
     Dates: start: 20130121, end: 20130209
  14. SOLU-MEDROL [Concomitant]
     Indication: PROPHYLAXIS
     Dosage: UNK
     Route: 042
     Dates: start: 20130121, end: 20130125
  15. GASTER D [Concomitant]
     Indication: GASTRIC ULCER
     Dosage: 10 MG, UNK
     Dates: start: 20120711, end: 20130227
  16. MAGLAX [Concomitant]
     Indication: CONSTIPATION
     Dosage: 330 MG, UNK
     Dates: start: 20120531, end: 20130227
  17. BAKTAR [Concomitant]
     Indication: ANTIFUNGAL PROPHYLAXIS
     Dosage: UNK
     Dates: start: 20120609, end: 20130227
  18. VALTREX [Concomitant]
     Indication: ANTIVIRAL PROPHYLAXIS
     Dosage: 500 MG, UNK
     Dates: start: 20120605, end: 20130227
  19. FILGRASTIM [Concomitant]
     Indication: APLASTIC ANAEMIA
     Dosage: UNK
     Dates: start: 20120531, end: 20130228

REACTIONS (8)
  - Renal impairment [Fatal]
  - Hepatic function abnormal [Not Recovered/Not Resolved]
  - Blood lactate dehydrogenase increased [Not Recovered/Not Resolved]
  - Febrile neutropenia [Fatal]
  - Cytomegalovirus infection [Not Recovered/Not Resolved]
  - Bronchopulmonary aspergillosis [Not Recovered/Not Resolved]
  - Epstein-Barr virus infection [Fatal]
  - Candida infection [Fatal]
